FAERS Safety Report 19004467 (Version 1)
Quarter: 2021Q1

REPORT INFORMATION
  Report Type: Spontaneous
  Country: US (occurrence: US)
  Receive Date: 20210312
  Receipt Date: 20210312
  Transmission Date: 20210420
  Serious: No
  Sender: FDA-Public Use
  Company Number: US-ASTRAZENECA-2021A059886

PATIENT
  Age: 25483 Day
  Sex: Female
  Weight: 68 kg

DRUGS (5)
  1. METFORMIN [Concomitant]
     Active Substance: METFORMIN HYDROCHLORIDE
  2. ATORVASTATIN [Concomitant]
     Active Substance: ATORVASTATIN
  3. PANTOPRAZOLE [Concomitant]
     Active Substance: PANTOPRAZOLE
  4. LISINOPRIL. [Concomitant]
     Active Substance: LISINOPRIL
  5. BYDUREON [Suspect]
     Active Substance: EXENATIDE
     Indication: DIABETES MELLITUS
     Route: 065

REACTIONS (6)
  - Wrong technique in device usage process [Unknown]
  - Intentional device misuse [Unknown]
  - Injection site pain [Unknown]
  - Venous injury [Unknown]
  - Injection site haemorrhage [Unknown]
  - Device delivery system issue [Unknown]

NARRATIVE: CASE EVENT DATE: 20210210
